FAERS Safety Report 24185440 (Version 2)
Quarter: 2024Q3

REPORT INFORMATION
  Report Type: Spontaneous
  Country: US (occurrence: US)
  Receive Date: 20240807
  Receipt Date: 20240819
  Transmission Date: 20241017
  Serious: No
  Sender: PFIZER
  Company Number: US-PFIZER INC-202400229775

PATIENT
  Age: 54 Year
  Sex: Female

DRUGS (1)
  1. IBRANCE [Suspect]
     Active Substance: PALBOCICLIB
     Dosage: 1 CAPSULE DAILY FOR 21 DAYS ON, THEN 7 DAYS OFF IN A 28 DAY CYCLE
     Route: 048
     Dates: start: 20240720

REACTIONS (4)
  - Frequent bowel movements [Unknown]
  - Diarrhoea [Unknown]
  - Discharge [Unknown]
  - Dizziness [Unknown]

NARRATIVE: CASE EVENT DATE: 20240731
